FAERS Safety Report 6657279-5 (Version None)
Quarter: 2010Q1

REPORT INFORMATION
  Report Type: 
  Country: None (occurrence: None)
  Receive Date: 20100330
  Receipt Date: 20100113
  Transmission Date: 20100710
  Serious: Yes (Other)
  Sender: FDA-Public Use
  Company Number: CN-ASTRAZENECA-2010SE13312

PATIENT
  Age: 31 Year
  Sex: Male

DRUGS (2)
  1. OMEPRAZOLE [Suspect]
     Indication: GASTROOESOPHAGEAL REFLUX DISEASE
  2. ITRACONAZOLE [Interacting]
     Indication: HIV INFECTION CDC GROUP IV SUBGROUP E

REACTIONS (2)
  - DRUG INTERACTION [None]
  - HISTOPLASMOSIS [None]
